FAERS Safety Report 5068188-X (Version None)
Quarter: 2006Q3

REPORT INFORMATION
  Report Type: 
  Country: None (occurrence: None)
  Receive Date: 20060802
  Receipt Date: 20040407
  Transmission Date: 20061208
  Serious: Yes (Other)
  Sender: FDA-Public Use
  Company Number: US-BRISTOL-MYERS SQUIBB COMPANY-12554267

PATIENT
  Age: 79 Year
  Sex: Female
  Weight: 59 kg

DRUGS (10)
  1. COUMADIN [Suspect]
     Indication: CEREBROVASCULAR ACCIDENT
     Route: 048
  2. COUMADIN [Suspect]
     Indication: ATRIAL FIBRILLATION
     Route: 048
  3. CALCIUM GLUCONATE [Concomitant]
     Indication: MINERAL SUPPLEMENTATION
     Dosage: TAKEN FOR SOME TIME
  4. MAGNESIUM [Concomitant]
     Indication: MINERAL SUPPLEMENTATION
     Dosage: TAKEN FOR SOME TIME
  5. MULTI-VITAMIN [Concomitant]
     Indication: VITAMIN SUPPLEMENTATION
     Dosage: TAKEN FOR SOME TIME
  6. BORON [Concomitant]
     Dosage: FROM APPROXIMATELY 4/2/04; ^SUPPLEMENT^
     Dates: start: 20040402
  7. ZINC [Concomitant]
     Dosage: FROM APPROXIMATELY 4/2/04; ^SUPPLEMENT^
     Dates: start: 20040402
  8. ACIDOPHILUS [Concomitant]
     Dosage: 9 TABLETS PER DAY FROM APPROXIMATELY 4/2/04; ^SUPPLEMENT^
     Dates: start: 20040402
  9. BETAPACE [Concomitant]
  10. NATURAL CRANBERRY FRUIT CONC + VITAMINS C + E [Concomitant]

REACTIONS (2)
  - INTERNATIONAL NORMALISED RATIO FLUCTUATION [None]
  - TRANSIENT ISCHAEMIC ATTACK [None]
